FAERS Safety Report 19792635 (Version 1)
Quarter: 2021Q3

REPORT INFORMATION
  Report Type: Spontaneous
  Country: US (occurrence: US)
  Receive Date: 20210906
  Receipt Date: 20210906
  Transmission Date: 20211014
  Serious: No
  Sender: FDA-Public Use
  Company Number: US-SA-2021SA291369

PATIENT
  Age: 41 Year
  Sex: Female

DRUGS (1)
  1. AUBAGIO [Suspect]
     Active Substance: TERIFLUNOMIDE
     Indication: MULTIPLE SCLEROSIS
     Dosage: 14 MG, QD
     Route: 048
     Dates: start: 20200925

REACTIONS (9)
  - Nasopharyngitis [Unknown]
  - Urinary tract discomfort [Unknown]
  - Bladder disorder [Unknown]
  - Hyperhidrosis [Unknown]
  - Balance disorder [Unknown]
  - Fatigue [Unknown]
  - Constipation [Unknown]
  - Abdominal discomfort [Unknown]
  - Depression [Unknown]

NARRATIVE: CASE EVENT DATE: 20210831
